FAERS Safety Report 7703546-3 (Version None)
Quarter: 2011Q3

REPORT INFORMATION
  Report Type: 
  Country: None (occurrence: None)
  Receive Date: 20110823
  Receipt Date: 20110808
  Transmission Date: 20111222
  Serious: Yes (Hospitalization)
  Sender: FDA-Public Use
  Company Number: PHHY2011FR71509

PATIENT
  Sex: Male

DRUGS (2)
  1. VOLTAREN [Suspect]
     Indication: SCIATICA
     Dosage: UNK UKN, UNK
     Route: 048
     Dates: start: 20110601, end: 20110625
  2. ENALAPRIL MALEATE AND HYDROCHLOROTHIAZIDE [Suspect]
     Indication: HYPERTENSION
     Dosage: UNK UKN, UNK
     Route: 048

REACTIONS (10)
  - PSYCHOMOTOR SKILLS IMPAIRED [None]
  - ASTHENIA [None]
  - RENAL FAILURE ACUTE [None]
  - NAUSEA [None]
  - SOMNOLENCE [None]
  - HYPOTENSION [None]
  - HYPERKALAEMIA [None]
  - BLOOD CREATININE INCREASED [None]
  - VOMITING [None]
  - STREPTOCOCCUS TEST POSITIVE [None]
